FAERS Safety Report 22206177 (Version 2)
Quarter: 2025Q1

REPORT INFORMATION
  Report Type: Spontaneous
  Country: JP (occurrence: JP)
  Receive Date: 20230413
  Receipt Date: 20250122
  Transmission Date: 20250408
  Serious: Yes (Hospitalization, Other)
  Sender: JOHNSON AND JOHNSON
  Company Number: JP-BAYER-2022A040022

PATIENT
  Sex: Male

DRUGS (2)
  1. XARELTO [Suspect]
     Active Substance: RIVAROXABAN
     Indication: Product used for unknown indication
     Route: 048
     Dates: start: 202103
  2. ASPIRIN [Suspect]
     Active Substance: ASPIRIN
     Indication: Product used for unknown indication
     Route: 048
     Dates: start: 2011, end: 202103

REACTIONS (4)
  - Cardiac failure [Unknown]
  - Gastrointestinal polyp haemorrhage [Unknown]
  - Anaemia [Unknown]
  - Gastric polyps [Unknown]

NARRATIVE: CASE EVENT DATE: 20210301
